FAERS Safety Report 15819257 (Version 1)
Quarter: 2019Q1

REPORT INFORMATION
  Report Type: Spontaneous
  Country: US (occurrence: US)
  Receive Date: 20190114
  Receipt Date: 20190114
  Transmission Date: 20190417
  Serious: No
  Sender: FDA-Public Use
  Company Number: US-ROCHE-2098024

PATIENT
  Age: 9 Year
  Sex: Female
  Weight: 17.71 kg

DRUGS (1)
  1. NUTROPIN AQ [Suspect]
     Active Substance: SOMATROPIN
     Indication: GROWTH RETARDATION
     Dosage: AT NIGHT ;?NUSPIN 10
     Route: 058
     Dates: start: 201803

REACTIONS (2)
  - Incorrect route of product administration [Unknown]
  - No adverse event [Unknown]
